FAERS Safety Report 14341504 (Version 1)
Quarter: 2018Q1

REPORT INFORMATION
  Report Type: Report from Study
  Country: US (occurrence: US)
  Receive Date: 20180102
  Receipt Date: 20180102
  Transmission Date: 20180509
  Serious: Yes (Other)
  Sender: FDA-Public Use
  Company Number: US-AMGEN-USASL2017192364

PATIENT
  Age: 64 Year
  Sex: Female

DRUGS (2)
  1. ENBREL [Suspect]
     Active Substance: ETANERCEPT
     Indication: RHEUMATOID ARTHRITIS
     Dosage: UNK, QWK
     Route: 065
     Dates: start: 2014, end: 2017
  2. ENBREL [Suspect]
     Active Substance: ETANERCEPT
     Dosage: UNK, QWK
     Route: 065
     Dates: start: 201708

REACTIONS (10)
  - Tooth extraction [Unknown]
  - Rib fracture [Unknown]
  - Clavicle fracture [Unknown]
  - Road traffic accident [Unknown]
  - Joint dislocation [Unknown]
  - Upper limb fracture [Unknown]
  - Dehydration [Unknown]
  - Ovarian cyst [Unknown]
  - Renal impairment [Unknown]
  - Pneumothorax [Unknown]

NARRATIVE: CASE EVENT DATE: 201706
